FAERS Safety Report 4403633-1 (Version None)
Quarter: 2004Q3

REPORT INFORMATION
  Report Type: 
  Country: None (occurrence: None)
  Receive Date: 20040715
  Receipt Date: 20040702
  Transmission Date: 20050211
  Serious: Yes (Other)
  Sender: FDA-Public Use
  Company Number: ENTC2004-0123(1)

PATIENT
  Age: 62 Year
  Sex: Female

DRUGS (6)
  1. STALEVO 100 [Suspect]
     Indication: PARKINSON'S DISEASE
     Dosage: 100 MG/25 MG/200 MG TID, ORAL
     Route: 048
     Dates: start: 20040506, end: 20040601
  2. METOPROLOL [Concomitant]
  3. MIRAPEX [Concomitant]
  4. ALTACE [Concomitant]
  5. EVISTA [Concomitant]
  6. PRILOSEC [Concomitant]

REACTIONS (5)
  - BLOOD PRESSURE SYSTOLIC INCREASED [None]
  - CHEST DISCOMFORT [None]
  - DYSPNOEA [None]
  - NAUSEA [None]
  - TACHYCARDIA [None]
